FAERS Safety Report 4302439-1 (Version None)
Quarter: 2004Q1

REPORT INFORMATION
  Report Type: 
  Country: None (occurrence: None)
  Receive Date: 20040223
  Receipt Date: 20040112
  Transmission Date: 20041129
  Serious: Yes (Other)
  Sender: FDA-Public Use
  Company Number: CHPA2004US00468

PATIENT
  Age: 67 Year
  Sex: Male

DRUGS (1)
  1. CLEARASIL PORE CLEANSING ASTRINGENT-OIL FREE (NCH) (SALICYLIC ACID, ET [Suspect]
     Dosage: ONCE/SINGLE, RIGHT EYE
     Dates: start: 20031229, end: 20031229

REACTIONS (3)
  - ACCIDENTAL EXPOSURE [None]
  - CHEMICAL BURNS OF EYE [None]
  - VISUAL DISTURBANCE [None]
